FAERS Safety Report 9430751 (Version 1)
Quarter: 2013Q3

REPORT INFORMATION
  Report Type: Report from Study
  Country: US (occurrence: US)
  Receive Date: 20130730
  Receipt Date: 20130730
  Transmission Date: 20140515
  Serious: No
  Sender: FDA-Public Use
  Company Number: US-ABBOTT-13P-163-1106092-00

PATIENT
  Age: 67 Year
  Sex: Male

DRUGS (7)
  1. NIASPAN (COATED) [Suspect]
     Indication: PRODUCT USED FOR UNKNOWN INDICATION
     Dates: start: 201305
  2. OXYCODONE [Concomitant]
     Indication: PRODUCT USED FOR UNKNOWN INDICATION
  3. GABAPENTIN [Concomitant]
     Indication: PRODUCT USED FOR UNKNOWN INDICATION
  4. CELEBREX [Concomitant]
     Indication: PRODUCT USED FOR UNKNOWN INDICATION
  5. CELEXA [Concomitant]
     Indication: PRODUCT USED FOR UNKNOWN INDICATION
  6. BUPROPION [Concomitant]
     Indication: PRODUCT USED FOR UNKNOWN INDICATION
  7. LIPITOR [Concomitant]
     Indication: PRODUCT USED FOR UNKNOWN INDICATION

REACTIONS (3)
  - Abdominal discomfort [Not Recovered/Not Resolved]
  - Myalgia [Not Recovered/Not Resolved]
  - Abdominal pain [Not Recovered/Not Resolved]
